FAERS Safety Report 25881387 (Version 1)
Quarter: 2025Q4

REPORT INFORMATION
  Report Type: Spontaneous
  Country: IN (occurrence: IN)
  Receive Date: 20251005
  Receipt Date: 20251005
  Transmission Date: 20260118
  Serious: Yes (Hospitalization, Other)
  Sender: DIFGEN PHARMACEUTICALS LLC
  Company Number: IN-Difgen-012161

PATIENT
  Age: 24 Year
  Sex: Male

DRUGS (1)
  1. BUPRENORPHINE [Suspect]
     Active Substance: BUPRENORPHINE
     Indication: Product used for unknown indication
     Route: 042

REACTIONS (3)
  - Embolia cutis medicamentosa [Unknown]
  - Wrong technique in product usage process [Unknown]
  - Self-medication [Unknown]
